FAERS Safety Report 8287950-3 (Version None)
Quarter: 2012Q2

REPORT INFORMATION
  Report Type: 
  Country: None (occurrence: None)
  Receive Date: 20120416
  Receipt Date: 20120410
  Transmission Date: 20120825
  Serious: Yes (Death)
  Sender: FDA-Public Use
  Company Number: US-JNJFOC-20080101630

PATIENT
  Age: 28 Year
  Sex: Female

DRUGS (3)
  1. ACETAMINOPHEN [Suspect]
     Indication: SUICIDE ATTEMPT
     Route: 048
  2. ACETAMINOPHEN [Suspect]
     Route: 048
  3. HYDROCODONE [Suspect]
     Indication: SUICIDE ATTEMPT
     Route: 048

REACTIONS (10)
  - ACUTE HEPATIC FAILURE [None]
  - SEPSIS [None]
  - DEPRESSION [None]
  - BLOOD GLUCOSE DECREASED [None]
  - BACK PAIN [None]
  - UNRESPONSIVE TO STIMULI [None]
  - MULTIPLE DRUG OVERDOSE INTENTIONAL [None]
  - RENAL TUBULAR NECROSIS [None]
  - DISORIENTATION [None]
  - BLOOD POTASSIUM INCREASED [None]
